FAERS Safety Report 9798799 (Version 2)
Quarter: 2014Q1

REPORT INFORMATION
  Report Type: Spontaneous
  Country: US (occurrence: US)
  Receive Date: 20140106
  Receipt Date: 20140106
  Transmission Date: 20141002
  Serious: No
  Sender: FDA-Public Use
  Company Number: US-GILEAD-2010-0029970

PATIENT
  Age: 74 Year
  Sex: Male
  Weight: 104 kg

DRUGS (17)
  1. LETAIRIS [Suspect]
     Indication: PULMONARY ARTERIAL HYPERTENSION
     Route: 048
     Dates: start: 20100615
  2. COREG [Concomitant]
  3. ZOCOR [Concomitant]
  4. LUMIGAN [Concomitant]
  5. COUMADIN [Concomitant]
  6. TEKTURNA HCT [Concomitant]
  7. ASPIRIN [Concomitant]
  8. CARDIZEM [Concomitant]
  9. VENTOLIN HFA [Concomitant]
  10. AVODART [Concomitant]
  11. SYMBICORT [Concomitant]
  12. ALLOPURINOL [Concomitant]
  13. ZESTRIL [Concomitant]
  14. PLAVIX [Concomitant]
  15. FINACEA [Concomitant]
  16. TYLENOL ARTH [Concomitant]
  17. CITRACAL + D [Concomitant]

REACTIONS (3)
  - Dizziness [Unknown]
  - Gastrointestinal haemorrhage [Unknown]
  - Anaemia [Unknown]
